APPROVED DRUG PRODUCT: NIZATIDINE
Active Ingredient: NIZATIDINE
Strength: 15MG/ML
Dosage Form/Route: SOLUTION;ORAL
Application: A090576 | Product #001
Applicant: AMNEAL PHARMACEUTICALS
Approved: Nov 18, 2009 | RLD: No | RS: No | Type: DISCN